FAERS Safety Report 7608272-7 (Version None)
Quarter: 2011Q3

REPORT INFORMATION
  Report Type: 
  Country: None (occurrence: None)
  Receive Date: 20110714
  Receipt Date: 20110708
  Transmission Date: 20111222
  Serious: Yes (Hospitalization)
  Sender: FDA-Public Use
  Company Number: MX-PFIZER INC-2011155918

PATIENT

DRUGS (2)
  1. GEODON [Suspect]
     Dosage: UNK
     Route: 030
     Dates: start: 20110707
  2. GEODON [Suspect]
     Dosage: UNK
     Route: 048
     Dates: start: 20110707

REACTIONS (2)
  - RASH [None]
  - SWELLING [None]
